FAERS Safety Report 19713035 (Version 1)
Quarter: 2021Q3

REPORT INFORMATION
  Report Type: Spontaneous
  Country: US (occurrence: US)
  Receive Date: 20210817
  Receipt Date: 20210817
  Transmission Date: 20211014
  Serious: Yes (Other)
  Sender: FDA-Public Use
  Company Number: None

PATIENT
  Age: 66 Year
  Sex: Female
  Weight: 91.4 kg

DRUGS (8)
  1. LEVETIRACETAM. [Concomitant]
     Active Substance: LEVETIRACETAM
     Dates: start: 20160711
  2. LACOSAMIDE. [Suspect]
     Active Substance: LACOSAMIDE
     Indication: SEIZURE
     Route: 048
     Dates: start: 20210803, end: 20210803
  3. PREGABALIN. [Concomitant]
     Active Substance: PREGABALIN
     Dates: start: 20210805
  4. LEVOTHYROXINE. [Concomitant]
     Active Substance: LEVOTHYROXINE
     Dates: start: 20160711
  5. PHENOBARBITAL. [Concomitant]
     Active Substance: PHENOBARBITAL
     Dates: start: 20160711
  6. ZONISAMIDE. [Concomitant]
     Active Substance: ZONISAMIDE
     Dates: start: 20210813
  7. HYDROXYUREA. [Concomitant]
     Active Substance: HYDROXYUREA
     Dates: start: 20180206
  8. LACTULOSE. [Concomitant]
     Active Substance: LACTULOSE
     Dates: start: 20160711

REACTIONS (7)
  - Lip oedema [None]
  - Injury [None]
  - Localised oedema [None]
  - Drooling [None]
  - Hypersensitivity [None]
  - Rash [None]
  - Decreased appetite [None]

NARRATIVE: CASE EVENT DATE: 20210804
